FAERS Safety Report 17291458 (Version 1)
Quarter: 2020Q1

REPORT INFORMATION
  Report Type: Spontaneous
  Country: TW (occurrence: TW)
  Receive Date: 20200121
  Receipt Date: 20200121
  Transmission Date: 20200409
  Serious: Yes (Death, Life-Threatening, Hospitalization, Other)
  Sender: FDA-Public Use
  Company Number: TW-ACCORD-170195

PATIENT
  Age: 52 Year
  Sex: Male

DRUGS (3)
  1. METHOTREXATE. [Suspect]
     Active Substance: METHOTREXATE
     Indication: HYPERSENSITIVITY VASCULITIS
  2. PREDNISOLONE. [Suspect]
     Active Substance: PREDNISOLONE
     Indication: HYPERSENSITIVITY VASCULITIS
  3. AZATHIOPRINE. [Suspect]
     Active Substance: AZATHIOPRINE
     Indication: HYPERSENSITIVITY VASCULITIS

REACTIONS (9)
  - Disseminated intravascular coagulation [Fatal]
  - Multiple organ dysfunction syndrome [Fatal]
  - Varicella zoster virus infection [Fatal]
  - Septic shock [Fatal]
  - Lactic acidosis [Fatal]
  - Condition aggravated [Fatal]
  - Dyspnoea [Fatal]
  - Anaemia [Fatal]
  - Coma [Fatal]
